FAERS Safety Report 7372239-7 (Version None)
Quarter: 2011Q1

REPORT INFORMATION
  Report Type: 
  Country: None (occurrence: None)
  Receive Date: 20110324
  Receipt Date: 20110316
  Transmission Date: 20110831
  Serious: Yes (Hospitalization)
  Sender: FDA-Public Use
  Company Number: A0751395A

PATIENT
  Age: 61 Year
  Sex: Male
  Weight: 137.3 kg

DRUGS (6)
  1. AVANDIA [Suspect]
     Dosage: 4MG PER DAY
     Route: 048
     Dates: start: 19990812, end: 20051104
  2. PRECOSE [Concomitant]
     Dates: start: 19971104
  3. INSULIN [Concomitant]
  4. METFORMIN HCL [Concomitant]
     Dates: start: 20000101
  5. DIABETA [Concomitant]
     Dates: start: 19971126
  6. GLUCOPHAGE [Concomitant]
     Dates: start: 19800101

REACTIONS (9)
  - OEDEMA PERIPHERAL [None]
  - MUSCLE SPASMS [None]
  - DEEP VEIN THROMBOSIS [None]
  - WEIGHT INCREASED [None]
  - MACULAR OEDEMA [None]
  - SWELLING [None]
  - THROMBOSIS [None]
  - LOCALISED INFECTION [None]
  - LACRIMATION INCREASED [None]
